FAERS Safety Report 19084683 (Version 2)
Quarter: 2021Q2

REPORT INFORMATION
  Report Type: Spontaneous
  Country: AR (occurrence: CL)
  Receive Date: 20210401
  Receipt Date: 20210422
  Transmission Date: 20210717
  Serious: Yes (Other)
  Sender: FDA-Public Use
  Company Number: CL-JNJFOC-20201108580

PATIENT
  Age: 63 Year
  Sex: Female

DRUGS (1)
  1. REMICADE [Suspect]
     Active Substance: INFLIXIMAB
     Indication: RHEUMATOID ARTHRITIS
     Route: 042
     Dates: end: 20191201

REACTIONS (4)
  - Hyperglycaemia [Unknown]
  - Lung disorder [Unknown]
  - Liver disorder [Unknown]
  - Tuberculosis [Unknown]

NARRATIVE: CASE EVENT DATE: 20201027
